FAERS Safety Report 7719021-6 (Version None)
Quarter: 2011Q3

REPORT INFORMATION
  Report Type: 
  Country: None (occurrence: None)
  Receive Date: 20110830
  Receipt Date: 20110825
  Transmission Date: 20111222
  Serious: Yes (Life-Threatening, Hospitalization)
  Sender: FDA-Public Use
  Company Number: US-GLAXOSMITHKLINE-Z0009864A

PATIENT
  Age: 43 Year
  Sex: Male
  Weight: 105.3 kg

DRUGS (3)
  1. BLINDED TRIAL MEDICATION [Suspect]
     Indication: ACUTE CORONARY SYNDROME
     Route: 048
     Dates: start: 20110307
  2. CARVEDILOL [Suspect]
     Indication: CORONARY ARTERY DISEASE
     Dosage: 3.125MG TWICE PER DAY
     Route: 048
     Dates: start: 20110326, end: 20110425
  3. LITHIUM CARBONATE [Suspect]
     Indication: BIPOLAR DISORDER
     Dosage: 1800MG AT NIGHT
     Route: 048
     Dates: start: 20100524, end: 20110521

REACTIONS (5)
  - RENAL FAILURE ACUTE [None]
  - HYPOTENSION [None]
  - BRADYCARDIA [None]
  - AGITATION [None]
  - SUICIDE ATTEMPT [None]
